FAERS Safety Report 21351669 (Version 1)
Quarter: 2022Q3

REPORT INFORMATION
  Report Type: Spontaneous
  Country: SG (occurrence: SG)
  Receive Date: 20220919
  Receipt Date: 20220919
  Transmission Date: 20221027
  Serious: Yes (Other)
  Sender: FDA-Public Use
  Company Number: SG-PAIPHARMA-2022-SG-000021

PATIENT
  Sex: 0

DRUGS (2)
  1. DIPHENHYDRAMINE HYDROCHLORIDE [Suspect]
     Active Substance: DIPHENHYDRAMINE HYDROCHLORIDE
     Indication: Cyclic vomiting syndrome
  2. ONDANSETRON [Suspect]
     Active Substance: ONDANSETRON
     Indication: Cyclic vomiting syndrome

REACTIONS (1)
  - Electrocardiogram QT prolonged [Not Recovered/Not Resolved]
